FAERS Safety Report 5961123-9 (Version None)
Quarter: 2008Q4

REPORT INFORMATION
  Report Type: 
  Country: None (occurrence: None)
  Receive Date: 20081119
  Receipt Date: 20081029
  Transmission Date: 20090506
  Serious: Yes (Hospitalization, Other)
  Sender: FDA-Public Use
  Company Number: ENC200800203

PATIENT
  Age: 72 Year
  Sex: Male

DRUGS (11)
  1. ARGATROBAN [Suspect]
     Indication: HEPARIN-INDUCED THROMBOCYTOPENIA
     Dosage: SEE IMAGE
     Route: 042
     Dates: end: 20081010
  2. ARGATROBAN [Suspect]
     Indication: HEPARIN-INDUCED THROMBOCYTOPENIA
     Dosage: SEE IMAGE
     Route: 042
     Dates: end: 20081010
  3. ARGATROBAN [Suspect]
     Indication: HEPARIN-INDUCED THROMBOCYTOPENIA
     Dosage: SEE IMAGE
     Route: 042
     Dates: start: 20081002
  4. ALLOPURINOL [Concomitant]
  5. FENISTIL-RETARD (DIMETINDENE MALEATE) [Concomitant]
  6. FURORESE 40 /00032601/ (FUROSEMIDE) [Concomitant]
  7. BROMOCRIPTINE (BROMOCRIPTIN) (BROMOCRIPTINE) [Concomitant]
  8. KALINOR /00031402/ (POTASSIUM CHLORIDE) [Concomitant]
  9. PANTOZOL /01263202/ (PANTOPRAZOLE SODIUM) [Concomitant]
  10. COMBACTAM (SULBACTAM SODIUM) [Concomitant]
  11. LISINOPRIL [Concomitant]

REACTIONS (3)
  - ACTIVATED PARTIAL THROMBOPLASTIN TIME PROLONGED [None]
  - COAGULATION TIME PROLONGED [None]
  - DRUG ADMINISTRATION ERROR [None]
